FAERS Safety Report 14944815 (Version 1)
Quarter: 2018Q2

REPORT INFORMATION
  Report Type: Spontaneous
  Country: US (occurrence: US)
  Receive Date: 20180529
  Receipt Date: 20180529
  Transmission Date: 20180711
  Serious: Yes (Hospitalization, Other)
  Sender: FDA-Public Use
  Company Number: US-IBIGEN-2018.04081

PATIENT
  Age: 48 Year
  Sex: Male

DRUGS (9)
  1. PRAZOSIN. [Concomitant]
     Active Substance: PRAZOSIN
     Dosage: ()
  2. COLCHICINE. [Concomitant]
     Active Substance: COLCHICINE
     Dosage: ()
  3. RANITIDINE. [Concomitant]
     Active Substance: RANITIDINE
     Dosage: ()
  4. CYCLOBENZAPRINE. [Concomitant]
     Active Substance: CYCLOBENZAPRINE
     Dosage: ()
  5. HYDROCODONE [Concomitant]
     Active Substance: HYDROCODONE
     Dosage: ()
  6. PIPERACILLIN AND TAZOBACTAM [Suspect]
     Active Substance: PIPERACILLIN SODIUM\TAZOBACTAM SODIUM
     Indication: OSTEOMYELITIS
     Dosage: ()
     Route: 042
  7. LACTULOSE. [Concomitant]
     Active Substance: LACTULOSE
     Indication: CONSTIPATION
     Dosage: ()AS NECESSARY??????
  8. HYDROMORPHONE [Concomitant]
     Active Substance: HYDROMORPHONE
     Dosage: ()
  9. VANCOMYCIN [Suspect]
     Active Substance: VANCOMYCIN
     Indication: OSTEOMYELITIS
     Dosage: ()
     Route: 042

REACTIONS (9)
  - Hepatic steatosis [None]
  - Drug reaction with eosinophilia and systemic symptoms [Recovered/Resolved]
  - Human herpesvirus 6 infection [Recovered/Resolved]
  - Tachycardia [None]
  - Epstein-Barr virus antibody positive [None]
  - Hepatic function abnormal [None]
  - Immunosuppression [None]
  - Hepatitis [Recovered/Resolved]
  - Hepatitis acute [None]
